FAERS Safety Report 18042803 (Version 1)
Quarter: 2020Q3

REPORT INFORMATION
  Report Type: Report from Study
  Country: US (occurrence: US)
  Receive Date: 20200720
  Receipt Date: 20200720
  Transmission Date: 20201103
  Serious: Yes (Hospitalization)
  Sender: FDA-Public Use
  Company Number: US-BAYER-2020-130871

PATIENT
  Age: 57 Year
  Sex: Male

DRUGS (4)
  1. NEXAVAR [Suspect]
     Active Substance: SORAFENIB
     Indication: THYROID CANCER
     Dosage: 200 MG, BID
     Route: 048
     Dates: start: 20200714
  2. NEXAVAR [Suspect]
     Active Substance: SORAFENIB
     Indication: THYROID CANCER
     Dosage: 400 MG, BID
     Route: 048
     Dates: start: 20200622, end: 20200622
  3. NEXAVAR [Suspect]
     Active Substance: SORAFENIB
     Indication: THYROID CANCER
     Dosage: 400 MG IN AM AND 200 MG IN PM
     Route: 048
     Dates: start: 20200623, end: 2020
  4. NEXAVAR [Suspect]
     Active Substance: SORAFENIB
     Indication: THYROID CANCER
     Dosage: 400 MG, BID
     Route: 048
     Dates: start: 202006, end: 202006

REACTIONS (13)
  - Hyperaesthesia [Not Recovered/Not Resolved]
  - Blood pressure decreased [Not Recovered/Not Resolved]
  - Weight decreased [Not Recovered/Not Resolved]
  - Dysphonia [Not Recovered/Not Resolved]
  - Myalgia [Unknown]
  - Furuncle [Not Recovered/Not Resolved]
  - Feeling cold [Not Recovered/Not Resolved]
  - Cough [Unknown]
  - Pain [Not Recovered/Not Resolved]
  - Decreased appetite [Not Recovered/Not Resolved]
  - Headache [Not Recovered/Not Resolved]
  - Skin exfoliation [Not Recovered/Not Resolved]
  - Fatigue [None]
